FAERS Safety Report 22627478 (Version 1)
Quarter: 2023Q2

REPORT INFORMATION
  Report Type: Spontaneous
  Country: US (occurrence: US)
  Receive Date: 20230622
  Receipt Date: 20230622
  Transmission Date: 20230722
  Serious: Yes (Other)
  Sender: FDA-Public Use
  Company Number: US-Hikma Pharmaceuticals-US-H14001-22-02287

PATIENT
  Age: 40 Year
  Sex: Male

DRUGS (10)
  1. LINEZOLID [Suspect]
     Active Substance: LINEZOLID
     Indication: Mycobacterium abscessus infection
     Dosage: 900 MILLIGRAM, ONCE A DAY
     Route: 065
  2. LINEZOLID [Suspect]
     Active Substance: LINEZOLID
     Indication: Central nervous system infection
     Dosage: 600 MILLIGRAM, TWO TIMES A DAY
     Route: 065
  3. AMIKACIN [Concomitant]
     Active Substance: AMIKACIN
     Indication: Central nervous system infection
     Dosage: 60 MILLIGRAM/KILOGRAM, EVERY WEEK (20 MG/KG 3 TIMES IN A WEEK)
     Route: 042
  4. AMIKACIN [Concomitant]
     Active Substance: AMIKACIN
     Indication: Mycobacterium abscessus infection
     Dosage: 20 MILLIGRAM, ONCE A DAY (20 OR 30 MG IVT QD) (INTRAVENTRICULAR)
     Route: 042
  5. AMIKACIN [Concomitant]
     Active Substance: AMIKACIN
     Dosage: 15 MILLIGRAM/KILOGRAM, ONCE A DAY
     Route: 042
  6. AMIKACIN [Concomitant]
     Active Substance: AMIKACIN
     Dosage: 30 MILLIGRAM, ONCE A DAY (20 OR 30 MG IVT QD) (INTRAVENTRICULAR)
     Route: 042
  7. CEFOXITIN [Concomitant]
     Active Substance: CEFOXITIN SODIUM
     Indication: Central nervous system infection
     Dosage: 2 GRAM (HIGH-DOSE 2 G Q4H)
     Route: 065
  8. CEFOXITIN [Concomitant]
     Active Substance: CEFOXITIN SODIUM
     Indication: Mycobacterium abscessus infection
  9. LEVOFLOXACIN [Concomitant]
     Active Substance: LEVOFLOXACIN
     Indication: Central nervous system infection
     Dosage: 500 MILLIGRAM, ONCE A DAY
     Route: 065
  10. LEVOFLOXACIN [Concomitant]
     Active Substance: LEVOFLOXACIN
     Indication: Mycobacterium abscessus infection

REACTIONS (3)
  - Thrombocytopenia [Unknown]
  - Deafness [Unknown]
  - Drug-induced liver injury [Unknown]
